FAERS Safety Report 7287286-3 (Version None)
Quarter: 2011Q1

REPORT INFORMATION
  Report Type: 
  Country: None (occurrence: None)
  Receive Date: 20110211
  Receipt Date: 20110205
  Transmission Date: 20110831
  Serious: Yes (Hospitalization)
  Sender: FDA-Public Use
  Company Number: BR-ROCHE-758059

PATIENT
  Age: 18 Year
  Sex: Male

DRUGS (1)
  1. ROACUTAN [Suspect]
     Route: 065

REACTIONS (5)
  - HYPOTENSION [None]
  - HEADACHE [None]
  - CONVULSION [None]
  - VOMITING [None]
  - LIVER DISORDER [None]
